FAERS Safety Report 7970101-X (Version None)
Quarter: 2011Q4

REPORT INFORMATION
  Report Type: 
  Country: None (occurrence: None)
  Receive Date: 20111212
  Receipt Date: 20111202
  Transmission Date: 20120403
  Serious: Yes (Hospitalization)
  Sender: FDA-Public Use
  Company Number: GB-TEVA-312153ISR

PATIENT
  Age: 75 Year
  Sex: Female
  Weight: 61 kg

DRUGS (11)
  1. ISOSORBIDE MONONITRATE [Concomitant]
     Route: 048
  2. RAMIPRIL [Concomitant]
     Dosage: STOPPED
  3. DEXAMETHASONE [Concomitant]
     Route: 048
  4. LEVOTHYROXINE SODIUM [Concomitant]
     Route: 048
  5. RANITIDINE [Concomitant]
  6. ALENDRONIC ACID [Concomitant]
  7. CYCLOSPORINE [Suspect]
     Indication: CHRONIC LYMPHOCYTIC LEUKAEMIA
     Route: 048
  8. AMITRIPTYLINE HCL [Concomitant]
     Route: 048
  9. BENDROFLUMETHIAZIDE [Concomitant]
     Dosage: STOPPED
  10. CLARITHROMYCIN [Suspect]
     Indication: MALAISE
     Route: 048
  11. ATENOLOL [Concomitant]
     Route: 048

REACTIONS (1)
  - RENAL FAILURE ACUTE [None]
